FAERS Safety Report 7216502-9 (Version None)
Quarter: 2011Q1

REPORT INFORMATION
  Report Type: 
  Country: None (occurrence: None)
  Receive Date: 20110107
  Receipt Date: 20101230
  Transmission Date: 20110831
  Serious: Yes (Other)
  Sender: FDA-Public Use
  Company Number: PHEH2008US10676

PATIENT
  Sex: Female
  Weight: 56 kg

DRUGS (58)
  1. CYCLOBENZAPRINE [Concomitant]
     Dosage: 10 MG, UNK
     Route: 048
  2. LEVAQUIN [Concomitant]
     Dosage: 500 MG, UNK
     Route: 048
  3. PEPCID [Concomitant]
  4. LOVENOX [Concomitant]
  5. NAPROXEN [Concomitant]
  6. ZOMETA [Suspect]
     Indication: BONE DENSITY DECREASED
     Dosage: UNK
     Dates: start: 20000101, end: 20060101
  7. CELEBREX [Concomitant]
     Dosage: 200 MG, UNK
     Route: 048
  8. FEMARA [Concomitant]
     Dosage: 2.5 MG, UNK
     Route: 048
  9. MAGNESIUM [Concomitant]
  10. METOCLOPRAMIDE [Concomitant]
  11. HEPARIN [Concomitant]
  12. AROMASIN [Concomitant]
  13. HYDROCORTISONE [Concomitant]
  14. TAMOXIFEN CITRATE [Concomitant]
     Dosage: UNK
     Dates: start: 19990601, end: 20020101
  15. CYTOXAN [Concomitant]
  16. CHEMOTHERAPEUTICS NOS [Concomitant]
  17. LORTAB [Concomitant]
  18. CALCIUM [Concomitant]
  19. PROPOXYPHENE HCL AND ACETAMINOPHEN [Concomitant]
     Dosage: 100 MG, UNK
     Route: 048
  20. RETIN-A [Concomitant]
     Dosage: 0.05 %, UNK
     Route: 061
  21. HALOTUSSIN [Concomitant]
     Dosage: UNK
     Route: 048
  22. AMOXICILLIN [Concomitant]
     Dosage: 500 MG, UNK
     Route: 048
  23. LIPITOR [Concomitant]
     Dosage: 20 MG, UNK
     Route: 048
  24. ARIMIDEX [Concomitant]
  25. SELENIUM [Concomitant]
  26. MULTIVITAMIN [Concomitant]
  27. DECADRON [Concomitant]
  28. NAPROSYN [Concomitant]
  29. DIPROLENE [Concomitant]
     Dosage: .05 %, UNK
  30. PROCRIT                            /00909301/ [Concomitant]
  31. PRILOSEC [Concomitant]
     Dosage: AS NEEDED
  32. ALPRAZOLAM [Concomitant]
     Dosage: .25 MG, UNK
     Route: 048
  33. PERCOCET [Concomitant]
     Dosage: 7.5 MG, UNK
     Route: 048
  34. WELCHOL [Concomitant]
  35. ZOMETA [Suspect]
     Indication: OSTEOPOROSIS
  36. OXYCODONE [Concomitant]
     Dosage: 5 MG, PRN
     Route: 048
  37. METHYLPREDNISOLONE [Concomitant]
     Dosage: 4 MG, UNK
     Route: 048
  38. BIAXIN [Concomitant]
     Dosage: 500 MG, UNK
     Route: 048
  39. PAXIL [Concomitant]
     Dosage: 20 MG, UNK
  40. WARFARIN SODIUM [Concomitant]
     Dosage: 1 MG, UNK
     Route: 048
  41. POTASSIUM [Concomitant]
  42. UROCIT-K [Concomitant]
  43. COUMADIN [Concomitant]
  44. DIGOXIN [Concomitant]
  45. K-DUR [Concomitant]
  46. PROMETHAZINE [Concomitant]
  47. PREDNISONE [Concomitant]
  48. TYLENOL-500 [Concomitant]
  49. AREDIA [Suspect]
     Indication: BONE DENSITY DECREASED
     Dosage: UNK
     Dates: start: 19990101, end: 20000101
  50. AREDIA [Suspect]
     Indication: OSTEOPOROSIS
  51. RANITIDINE [Concomitant]
     Dosage: 150 MG, UNK
     Route: 048
  52. ADIPEX [Concomitant]
     Dosage: 37.5 MG, UNK
     Route: 048
  53. LORAZEPAM [Concomitant]
     Dosage: 1 MG, UNK
     Route: 048
  54. AMBIEN [Concomitant]
     Dosage: 10 MG, UNK
     Route: 048
  55. SODIUM CHLORIDE [Concomitant]
  56. PREVACID [Concomitant]
  57. CREON [Concomitant]
  58. AFRIN                              /00070002/ [Concomitant]

REACTIONS (63)
  - OSTEOPENIA [None]
  - GAIT DISTURBANCE [None]
  - BONE LESION [None]
  - SCOLIOSIS [None]
  - RASH [None]
  - DIARRHOEA [None]
  - CHRONIC SINUSITIS [None]
  - UPPER LIMB FRACTURE [None]
  - PRESYNCOPE [None]
  - SPINAL OSTEOARTHRITIS [None]
  - INTERVERTEBRAL DISC DEGENERATION [None]
  - SPINAL FRACTURE [None]
  - RIB FRACTURE [None]
  - PANCREATITIS ACUTE [None]
  - METABOLIC ACIDOSIS [None]
  - MALAISE [None]
  - RENAL FAILURE CHRONIC [None]
  - WEIGHT DECREASED [None]
  - RENAL LIPOMATOSIS [None]
  - LEUKOCYTOSIS [None]
  - ANAEMIA OF MALIGNANT DISEASE [None]
  - OSTEONECROSIS [None]
  - HYPOTENSION [None]
  - ARTHRALGIA [None]
  - OSTEOARTHRITIS [None]
  - RENAL TUBULAR ACIDOSIS [None]
  - ADRENAL INSUFFICIENCY [None]
  - NAUSEA [None]
  - ACTINIC KERATOSIS [None]
  - LIPOMA [None]
  - SPONDYLOLISTHESIS [None]
  - PULMONARY GRANULOMA [None]
  - NEPHRITIC SYNDROME [None]
  - ASTHENIA [None]
  - PLEURAL EFFUSION [None]
  - OSTEONECROSIS OF JAW [None]
  - JOINT EFFUSION [None]
  - LUNG DISORDER [None]
  - LUNG NEOPLASM [None]
  - OSTEOSCLEROSIS [None]
  - HYPOGLYCAEMIA [None]
  - RENAL FAILURE [None]
  - METASTASES TO BONE [None]
  - HYPOKALAEMIA [None]
  - MALNUTRITION [None]
  - HERPES ZOSTER [None]
  - BASAL CELL CARCINOMA [None]
  - MUSCULOSKELETAL CHEST PAIN [None]
  - DECREASED APPETITE [None]
  - FATIGUE [None]
  - PROTHROMBIN TIME PROLONGED [None]
  - LUNG INFILTRATION [None]
  - PROTEINURIA [None]
  - SPINAL COMPRESSION FRACTURE [None]
  - BACK PAIN [None]
  - PRURITUS [None]
  - ERYTHEMA [None]
  - BULLOUS LUNG DISEASE [None]
  - OEDEMA PERIPHERAL [None]
  - HYPOALBUMINAEMIA [None]
  - DUODENAL POLYP [None]
  - CHRONIC OBSTRUCTIVE PULMONARY DISEASE [None]
  - DEEP VEIN THROMBOSIS [None]
